FAERS Safety Report 6008307-1 (Version None)
Quarter: 2008Q4

REPORT INFORMATION
  Report Type: 
  Country: None (occurrence: None)
  Receive Date: 20081215
  Receipt Date: 20081204
  Transmission Date: 20090506
  Serious: Yes (Hospitalization, Other)
  Sender: FDA-Public Use
  Company Number: 2008SP024867

PATIENT
  Age: 74 Year
  Sex: Male

DRUGS (6)
  1. DIAFUSOR (GLYCERYL TRINITRATE) (GLYCERYL TRINITRATE) [Suspect]
     Dosage: 15 MG; QD; CUT
  2. CORVASAL (MOLSIDOMINE) [Suspect]
     Dosage: 2 MG; BID
  3. ASPEGIC 1000 [Suspect]
     Dates: end: 19990603
  4. POTASSIUM CHLORIDE [Suspect]
     Dosage: 3600 MG; QD
  5. FONZYLINE (BUF;OMEDIL HYDROCHLORIDE) [Suspect]
     Dosage: 600 MG; QD
  6. BI TILDIEM (DILTIAZEM HYDROCHLORIDE) [Suspect]
     Dosage: 240 MG; QD

REACTIONS (5)
  - ABDOMINAL PAIN [None]
  - ABDOMINAL PAIN UPPER [None]
  - ANGIODYSPLASIA [None]
  - MELAENA [None]
  - ULCER HAEMORRHAGE [None]
